FAERS Safety Report 22309350 (Version 3)
Quarter: 2023Q4

REPORT INFORMATION
  Report Type: Spontaneous
  Country: JP (occurrence: JP)
  Receive Date: 20230511
  Receipt Date: 20231120
  Transmission Date: 20240110
  Serious: Yes (Death, Other)
  Sender: FDA-Public Use
  Company Number: JP-TAKEDA-2023TJP005571

PATIENT
  Age: 79 Year
  Sex: Female
  Weight: 53.8 kg

DRUGS (5)
  1. CABOMETYX [Suspect]
     Active Substance: CABOZANTINIB S-MALATE
     Indication: Renal cancer
     Dosage: 60 MG, QD
     Route: 048
     Dates: start: 20230313, end: 20230403
  2. HERBALS [Concomitant]
     Active Substance: HERBALS
     Indication: Diarrhoea
     Dosage: 2.5 G, TID
     Route: 048
     Dates: start: 20221031, end: 20230403
  3. KALLIDINOGENASE [Concomitant]
     Active Substance: KALLIDINOGENASE
     Dosage: 50 MG, TID
     Route: 048
     Dates: start: 20230329
  4. XARELTO [Concomitant]
     Active Substance: RIVAROXABAN
     Indication: Myocardial infarction
     Dosage: 15 MG, QD
     Route: 048
  5. ZETIA [Concomitant]
     Active Substance: EZETIMIBE
     Indication: Hyperlipidaemia
     Dosage: 2 MG, QD
     Route: 048

REACTIONS (2)
  - Drowning [Fatal]
  - Diarrhoea [Not Recovered/Not Resolved]

NARRATIVE: CASE EVENT DATE: 20230329
